FAERS Safety Report 9817334 (Version 1)
Quarter: 2014Q1

REPORT INFORMATION
  Report Type: Report from Study
  Country: US (occurrence: US)
  Receive Date: 20140115
  Receipt Date: 20140115
  Transmission Date: 20141002
  Serious: Yes (Other)
  Sender: FDA-Public Use
  Company Number: US-ROCHE-1331713

PATIENT
  Sex: Male
  Weight: 18 kg

DRUGS (5)
  1. NUTROPIN AQ [Suspect]
     Indication: HYPOPITUITARISM
     Route: 058
     Dates: end: 20130612
  2. NUTROPIN AQ [Suspect]
     Route: 058
     Dates: start: 20130612, end: 20131211
  3. NUTROPIN AQ [Suspect]
     Route: 058
     Dates: start: 20131211
  4. ADVIL [Concomitant]
     Route: 048
  5. BACLOFEN [Concomitant]
     Route: 048

REACTIONS (6)
  - Vomiting [Unknown]
  - Tonsillar hypertrophy [Unknown]
  - Drug dose omission [Unknown]
  - Injection site discomfort [Unknown]
  - Weight increased [Unknown]
  - Increased appetite [Unknown]
